FAERS Safety Report 22276794 (Version 4)
Quarter: 2024Q1

REPORT INFORMATION
  Report Type: Report from Study
  Country: US (occurrence: US)
  Receive Date: 20230503
  Receipt Date: 20240303
  Transmission Date: 20240409
  Serious: Yes (Other)
  Sender: FDA-Public Use
  Company Number: US-ABBVIE-4747966

PATIENT
  Sex: Female
  Weight: 91 kg

DRUGS (4)
  1. HUMIRA [Suspect]
     Active Substance: ADALIMUMAB
     Indication: Ankylosing spondylitis
     Dosage: FORM STRENGTH: 40 MILLIGRAM
     Route: 058
     Dates: start: 20220301
  2. DUREZOL [Concomitant]
     Active Substance: DIFLUPREDNATE
     Indication: Product used for unknown indication
     Route: 065
  3. FOLIC ACID [Concomitant]
     Active Substance: FOLIC ACID
     Indication: Product used for unknown indication
     Route: 048
     Dates: start: 20230808
  4. VITAFOL ULTRA [Concomitant]
     Active Substance: .ALPHA.-TOCOPHEROL ACETATE, DL-\.BETA.-CAROTENE\ASCORBIC ACID\CHOLECALCIFEROL\CUPRIC OXIDE\CYANOCOBA
     Indication: Product used for unknown indication
     Route: 048
     Dates: start: 20230404, end: 20231130

REACTIONS (9)
  - Abortion spontaneous [Unknown]
  - Iridocyclitis [Unknown]
  - Maternal exposure during pregnancy [Unknown]
  - Peripheral swelling [Unknown]
  - Ankylosing spondylitis [Unknown]
  - Pain in extremity [Unknown]
  - HLA-B*27 positive [Unknown]
  - Arthralgia [Unknown]
  - Joint stiffness [Unknown]
